FAERS Safety Report 5509628-9 (Version None)
Quarter: 2007Q4

REPORT INFORMATION
  Report Type: 
  Country: None (occurrence: None)
  Receive Date: 20071108
  Receipt Date: 20071030
  Transmission Date: 20080405
  Serious: Yes (Other)
  Sender: FDA-Public Use
  Company Number: PHEH2007US14234

PATIENT
  Sex: Female

DRUGS (1)
  1. RITALIN [Suspect]
     Dosage: 10 MG, BID
     Route: 048
     Dates: start: 19890101, end: 20071001

REACTIONS (5)
  - ANAEMIA [None]
  - BALANCE DISORDER [None]
  - DEHYDRATION [None]
  - FALL [None]
  - ORTHOSTATIC HYPOTENSION [None]
